FAERS Safety Report 10459255 (Version 1)
Quarter: 2014Q3

REPORT INFORMATION
  Report Type: Spontaneous
  Country: US (occurrence: US)
  Receive Date: 20140917
  Receipt Date: 20140917
  Transmission Date: 20150326
  Serious: No
  Sender: FDA-Public Use
  Company Number: US-PFIZER INC-2014252644

PATIENT
  Age: 30 Year
  Sex: Male

DRUGS (2)
  1. MORPHINE SULFATE. [Suspect]
     Active Substance: MORPHINE SULFATE
     Dosage: 30 MG, AS NEEDED( IMMEDIATE RELEASE)
     Route: 048
  2. MORPHINE SULFATE. [Suspect]
     Active Substance: MORPHINE SULFATE
     Dosage: 300 MG, DAILY  (1 CAPSULE BY MOUTH IN THE MORNING AND 2 CAPSULES AT NIGHT)
     Route: 048

REACTIONS (5)
  - Arthralgia [Unknown]
  - Constipation [Unknown]
  - Joint swelling [Unknown]
  - Joint range of motion decreased [Unknown]
  - Gait disturbance [Unknown]
